FAERS Safety Report 8518009-5 (Version None)
Quarter: 2012Q3

REPORT INFORMATION
  Report Type: 
  Country: None (occurrence: None)
  Receive Date: 20120718
  Receipt Date: 20110801
  Transmission Date: 20120928
  Serious: No
  Sender: FDA-Public Use
  Company Number: US-BRISTOL-MYERS SQUIBB COMPANY-15939390

PATIENT
  Age: 73 Year
  Sex: Male

DRUGS (14)
  1. COUMADIN [Suspect]
  2. FUROSEMIDE [Concomitant]
  3. METOPROLOL SUCCINATE [Concomitant]
  4. ASPIRIN [Concomitant]
  5. LOVAZA [Concomitant]
  6. ACTONEL [Concomitant]
  7. CALCIUM [Concomitant]
  8. COLACE [Concomitant]
  9. ZETIA [Concomitant]
  10. ZETIA [Concomitant]
  11. DIGOXIN [Concomitant]
  12. DIOVAN [Concomitant]
  13. LIPITOR [Concomitant]
  14. NIACIN [Concomitant]

REACTIONS (1)
  - SKIN DISCOLOURATION [None]
